FAERS Safety Report 13711663 (Version 1)
Quarter: 2017Q3

REPORT INFORMATION
  Report Type: Spontaneous
  Country: US (occurrence: US)
  Receive Date: 20170703
  Receipt Date: 20170703
  Transmission Date: 20171127
  Serious: Yes (Other)
  Sender: FDA-Public Use
  Company Number: US-BAYER-2017-119493

PATIENT

DRUGS (1)
  1. CIPRO [Suspect]
     Active Substance: CIPROFLOXACIN HYDROCHLORIDE
     Indication: KIDNEY INFECTION
     Dosage: 500 MG, BID
     Dates: start: 20170408

REACTIONS (15)
  - Back pain [None]
  - Mental impairment [None]
  - Dyskinesia [None]
  - Eye pain [None]
  - Fatigue [None]
  - Nausea [None]
  - Vomiting [None]
  - Diarrhoea [None]
  - Gait disturbance [None]
  - Musculoskeletal pain [None]
  - Pain in extremity [None]
  - Headache [None]
  - Gastrointestinal disorder [None]
  - Generalised tonic-clonic seizure [None]
  - Amnesia [None]

NARRATIVE: CASE EVENT DATE: 2017
